FAERS Safety Report 7338153-8 (Version None)
Quarter: 2011Q1

REPORT INFORMATION
  Report Type: 
  Country: None (occurrence: None)
  Receive Date: 20110308
  Receipt Date: 20110223
  Transmission Date: 20110831
  Serious: Yes (Hospitalization)
  Sender: FDA-Public Use
  Company Number: FR-ELI_LILLY_AND_COMPANY-FR201103000179

PATIENT
  Sex: Male

DRUGS (10)
  1. HYTACAND [Concomitant]
  2. XANTHIUM [Concomitant]
  3. TANAKAN [Concomitant]
  4. DEPAKOTE [Concomitant]
  5. ATHYMIL [Concomitant]
  6. PREVISCAN [Concomitant]
  7. PRAVASTATIN [Concomitant]
  8. CYMBALTA [Suspect]
     Dosage: UNK, UNKNOWN
     Route: 048
     Dates: start: 20101022
  9. NORSET [Concomitant]
  10. ALDACTONE [Concomitant]

REACTIONS (3)
  - ERYTHEMA [None]
  - OEDEMA PERIPHERAL [None]
  - PETECHIAE [None]
